FAERS Safety Report 6529608-4 (Version None)
Quarter: 2010Q1

REPORT INFORMATION
  Report Type: 
  Country: None (occurrence: None)
  Receive Date: 20100107
  Receipt Date: 20091229
  Transmission Date: 20100710
  Serious: Yes (Other)
  Sender: FDA-Public Use
  Company Number: US-ASTRAZENECA-2009SE27487

PATIENT
  Sex: Male

DRUGS (2)
  1. PRILOSEC OTC [Suspect]
     Route: 048
     Dates: start: 20030101
  2. PLAVIX [Suspect]
     Route: 065
     Dates: start: 20030101

REACTIONS (16)
  - ADVERSE REACTION [None]
  - ANXIETY [None]
  - APATHY [None]
  - CARDIAC FAILURE CONGESTIVE [None]
  - DEPRESSION [None]
  - DIZZINESS [None]
  - DYSPNOEA [None]
  - FLUID RETENTION [None]
  - HOT FLUSH [None]
  - HYPERHIDROSIS [None]
  - NAUSEA [None]
  - NONSPECIFIC REACTION [None]
  - PAIN [None]
  - PANCREATIC CARCINOMA [None]
  - URINE COLOUR ABNORMAL [None]
  - URTICARIA [None]
